FAERS Safety Report 10695443 (Version 4)
Quarter: 2015Q1

REPORT INFORMATION
  Report Type: Spontaneous
  Country: US (occurrence: US)
  Receive Date: 20150107
  Receipt Date: 20150311
  Transmission Date: 20150721
  Serious: Yes (Hospitalization)
  Sender: FDA-Public Use
  Company Number: US-009507513-1111USA02837

PATIENT
  Sex: Male
  Weight: 79.37 kg

DRUGS (1)
  1. PROPECIA [Suspect]
     Active Substance: FINASTERIDE
     Indication: ANDROGENETIC ALOPECIA
     Dosage: 1 MG, QD
     Route: 048
     Dates: start: 20060920, end: 20080320

REACTIONS (21)
  - Organic erectile dysfunction [Unknown]
  - Onychomycosis [Unknown]
  - Prostatitis [Unknown]
  - Erectile dysfunction [Unknown]
  - Depression [Not Recovered/Not Resolved]
  - Upper respiratory tract infection [Unknown]
  - Dysuria [Unknown]
  - Breast enlargement [Unknown]
  - Onychomycosis [Unknown]
  - Haematuria [Unknown]
  - Renal cyst [Unknown]
  - Arthralgia [Unknown]
  - Musculoskeletal discomfort [Unknown]
  - Micturition urgency [Unknown]
  - Urine leukocyte esterase positive [Unknown]
  - Dermatitis [Unknown]
  - Blood testosterone decreased [Unknown]
  - Loss of libido [Unknown]
  - Knee operation [Unknown]
  - Penile wart [Unknown]
  - Urinary tract inflammation [Unknown]

NARRATIVE: CASE EVENT DATE: 2006
